FAERS Safety Report 10057995 (Version 1)
Quarter: 2014Q2

REPORT INFORMATION
  Report Type: Spontaneous
  Country: US (occurrence: None)
  Receive Date: 20140403
  Receipt Date: 20140403
  Transmission Date: 20141212
  Serious: Yes (Disabling)
  Sender: FDA-Public Use
  Company Number: None

PATIENT
  Age: 48 Year
  Sex: Female
  Weight: 77.11 kg

DRUGS (4)
  1. ATORVASTATIN [Suspect]
     Indication: BLOOD CHOLESTEROL INCREASED
     Dosage: 10 MG, 1 PILL, 1X, BY MOUTH
     Route: 048
     Dates: start: 1999, end: 2000
  2. PREVACID [Concomitant]
  3. MULTI VITAMIN [Concomitant]
  4. CALCIUM -D [Concomitant]

REACTIONS (2)
  - Migraine [None]
  - Hysterectomy [None]
